FAERS Safety Report 13314275 (Version 1)
Quarter: 2017Q1

REPORT INFORMATION
  Report Type: Spontaneous
  Country: JP (occurrence: JP)
  Receive Date: 20170309
  Receipt Date: 20170309
  Transmission Date: 20170428
  Serious: Yes (Hospitalization, Other)
  Sender: FDA-Public Use
  Company Number: JP-JNJFOC-20170218389

PATIENT
  Age: 68 Year
  Sex: Female

DRUGS (2)
  1. WARFARIN POTASSIUM [Interacting]
     Active Substance: WARFARIN POTASSIUM
     Indication: PRODUCT USED FOR UNKNOWN INDICATION
     Route: 048
  2. TRAMCET [Suspect]
     Active Substance: ACETAMINOPHEN\TRAMADOL
     Indication: ABDOMINAL PAIN UPPER
     Route: 048
     Dates: start: 20170205, end: 20170208

REACTIONS (5)
  - Haemorrhage subcutaneous [Unknown]
  - Drug interaction [Unknown]
  - International normalised ratio increased [Unknown]
  - Interstitial lung disease [Unknown]
  - Oedema [Unknown]

NARRATIVE: CASE EVENT DATE: 2017
